FAERS Safety Report 15306362 (Version 1)
Quarter: 2018Q3

REPORT INFORMATION
  Report Type: Report from Study
  Country: BE (occurrence: BE)
  Receive Date: 20180822
  Receipt Date: 20180822
  Transmission Date: 20181010
  Serious: Yes (Hospitalization)
  Sender: FDA-Public Use
  Company Number: BE-PFIZER INC-2018272945

PATIENT
  Age: 68 Year
  Sex: Male
  Weight: 83 kg

DRUGS (11)
  1. ETANERCEPT [Concomitant]
     Active Substance: ETANERCEPT
     Indication: RHEUMATOID ARTHRITIS
     Route: 065
     Dates: start: 20180511
  2. CLINDAMYCINE [CLINDAMYCIN] [Concomitant]
     Dosage: 1800 MG, 1X/DAY
     Route: 048
     Dates: start: 20180126, end: 20180303
  3. CLINDAMYCINE [CLINDAMYCIN] [Concomitant]
     Dosage: 1800 MG, 1X/DAY
     Route: 048
     Dates: start: 20180108, end: 20180118
  4. DEPO?MEDROL [Concomitant]
     Active Substance: METHYLPREDNISOLONE ACETATE
     Dosage: 40 MG, UNK
     Route: 065
     Dates: start: 20180130, end: 20180130
  5. METHYLPREDNISOLONE. [Suspect]
     Active Substance: METHYLPREDNISOLONE
     Indication: RHEUMATOID ARTHRITIS
     Dosage: 16 MG, 1X/DAY
     Route: 048
     Dates: start: 20171103, end: 20171201
  6. CLINDAMYCINE [CLINDAMYCIN] [Concomitant]
     Dosage: 1800 MG, 1X/DAY
     Route: 042
     Dates: start: 20180105, end: 20180107
  7. LIDOCAINE. [Concomitant]
     Active Substance: LIDOCAINE
     Dosage: UNK
     Route: 065
     Dates: start: 20180130, end: 20180130
  8. PARACETAMOL [Concomitant]
     Active Substance: ACETAMINOPHEN
     Dosage: 1 G, UNK
     Route: 065
     Dates: start: 20180105, end: 20180107
  9. METHYLPREDNISOLONE. [Suspect]
     Active Substance: METHYLPREDNISOLONE
     Dosage: 4 MG, 1X/DAY
     Route: 048
     Dates: start: 20171223, end: 20180112
  10. METHYLPREDNISOLONE. [Suspect]
     Active Substance: METHYLPREDNISOLONE
     Dosage: 8 MG, 1X/DAY
     Route: 048
     Dates: start: 20171202, end: 20171222
  11. TOCILIZUMAB. [Suspect]
     Active Substance: TOCILIZUMAB
     Indication: RHEUMATOID ARTHRITIS
     Dosage: 162 MG, WEEKLY
     Route: 058
     Dates: start: 20171103, end: 20180423

REACTIONS (5)
  - Cellulitis [Recovering/Resolving]
  - Drug ineffective [Unknown]
  - Nasopharyngitis [Recovered/Resolved]
  - Back pain [Recovering/Resolving]
  - Lymphangitis [Recovering/Resolving]

NARRATIVE: CASE EVENT DATE: 20171128
